FAERS Safety Report 12049564 (Version 2)
Quarter: 2017Q1

REPORT INFORMATION
  Report Type: Spontaneous
  Country: US (occurrence: US)
  Receive Date: 20160209
  Receipt Date: 20170131
  Transmission Date: 20170428
  Serious: No
  Sender: FDA-Public Use
  Company Number: US-ABBVIE-15P-163-1422155-00

PATIENT
  Sex: Female

DRUGS (1)
  1. HUMIRA [Suspect]
     Active Substance: ADALIMUMAB
     Indication: PRODUCT USED FOR UNKNOWN INDICATION
     Route: 058

REACTIONS (10)
  - Pain [Unknown]
  - Hypothyroidism [Unknown]
  - Gluten sensitivity [Unknown]
  - Dyspepsia [Unknown]
  - Feeling cold [Unknown]
  - Abdominal distension [Unknown]
  - Cow^s milk intolerance [Unknown]
  - Psoriatic arthropathy [Unknown]
  - Abdominal pain upper [Unknown]
  - Gastric disorder [Unknown]
